FAERS Safety Report 5409745-8 (Version None)
Quarter: 2007Q3

REPORT INFORMATION
  Report Type: 
  Country: None (occurrence: None)
  Receive Date: 20070809
  Receipt Date: 20070801
  Transmission Date: 20080115
  Serious: Yes (Hospitalization)
  Sender: FDA-Public Use
  Company Number: B0481624A

PATIENT
  Age: 33 Year
  Sex: Female

DRUGS (3)
  1. EPIVIR [Suspect]
     Route: 048
  2. RETROVIR [Suspect]
     Route: 048
  3. VIRACEPT [Suspect]
     Route: 048

REACTIONS (3)
  - DRUG EXPOSURE DURING PREGNANCY [None]
  - PREMATURE LABOUR [None]
  - PULMONARY EMBOLISM [None]
